FAERS Safety Report 9145482 (Version 1)
Quarter: 2013Q1

REPORT INFORMATION
  Report Type: Spontaneous
  Country: GB (occurrence: GB)
  Receive Date: 20130307
  Receipt Date: 20130307
  Transmission Date: 20140127
  Serious: Yes (Other)
  Sender: FDA-Public Use
  Company Number: GB-UCBSA-079718

PATIENT
  Age: 48 Year
  Sex: Female

DRUGS (4)
  1. CIMZIA [Suspect]
     Indication: RHEUMATOID ARTHRITIS
     Route: 058
     Dates: start: 20121129
  2. IBUPROFEN [Concomitant]
  3. PARACETAMOL [Concomitant]
  4. THYROXINE [Concomitant]

REACTIONS (1)
  - Alopecia [Not Recovered/Not Resolved]
